FAERS Safety Report 9012764 (Version 2)
Quarter: 2013Q1

REPORT INFORMATION
  Report Type: Report from Study
  Country: CA (occurrence: CA)
  Receive Date: 20130114
  Receipt Date: 20130329
  Transmission Date: 20140127
  Serious: Yes (Life-Threatening, Other)
  Sender: FDA-Public Use
  Company Number: CA-ROCHE-1179067

PATIENT
  Sex: Female
  Weight: 64 kg

DRUGS (9)
  1. ACTEMRA [Suspect]
     Indication: RHEUMATOID ARTHRITIS
     Dosage: 8 MG/KG
     Route: 042
     Dates: start: 20120531
  2. METHOTREXATE [Concomitant]
     Route: 048
     Dates: start: 20111123
  3. FOLIC ACID [Concomitant]
     Route: 048
     Dates: start: 20111123
  4. PREDNISONE [Concomitant]
  5. RABEPRAZOLE [Concomitant]
  6. PLAQUENIL [Concomitant]
     Indication: RHEUMATOID ARTHRITIS
     Route: 048
     Dates: start: 20111122
  7. TYLENOL [Concomitant]
     Indication: RHEUMATOID ARTHRITIS
     Route: 048
     Dates: start: 2010
  8. ADVIL [Concomitant]
     Indication: RHEUMATOID ARTHRITIS
     Route: 048
     Dates: start: 2010
  9. PARIET [Concomitant]
     Route: 048

REACTIONS (3)
  - Menorrhagia [Recovered/Resolved]
  - Haemoglobin decreased [Not Recovered/Not Resolved]
  - Cystitis [Recovered/Resolved]
